FAERS Safety Report 18705618 (Version 5)
Quarter: 2022Q4

REPORT INFORMATION
  Report Type: Report from Study
  Country: US (occurrence: US)
  Receive Date: 20210106
  Receipt Date: 20221205
  Transmission Date: 20230113
  Serious: No
  Sender: FDA-Public Use
  Company Number: US-NOVARTISTESTPH-NVSC2021US001573

PATIENT
  Age: 44 Year
  Sex: Female

DRUGS (4)
  1. KESIMPTA [Suspect]
     Active Substance: OFATUMUMAB
     Indication: Relapsing multiple sclerosis
     Dosage: 20 MG, QMO
     Route: 058
     Dates: start: 20210101, end: 20210105
  2. KESIMPTA [Suspect]
     Active Substance: OFATUMUMAB
     Indication: Secondary progressive multiple sclerosis
     Dosage: 20 MG, QMO
     Route: 058
  3. KESIMPTA [Suspect]
     Active Substance: OFATUMUMAB
     Indication: Relapsing-remitting multiple sclerosis
  4. KESIMPTA [Suspect]
     Active Substance: OFATUMUMAB
     Indication: Clinically isolated syndrome

REACTIONS (5)
  - Rhinorrhoea [Recovered/Resolved]
  - Temperature intolerance [Unknown]
  - Weight increased [Unknown]
  - Nausea [Recovered/Resolved]
  - Headache [Recovered/Resolved]

NARRATIVE: CASE EVENT DATE: 20210101
